FAERS Safety Report 21366767 (Version 2)
Quarter: 2022Q4

REPORT INFORMATION
  Report Type: Spontaneous
  Country: US (occurrence: None)
  Receive Date: 20220923
  Receipt Date: 20221227
  Transmission Date: 20230113
  Serious: No
  Sender: FDA-Public Use
  Company Number: 2022A253407

PATIENT
  Age: 26859 Day
  Sex: Male
  Weight: 136.1 kg

DRUGS (1)
  1. BYDUREON BCISE [Suspect]
     Active Substance: EXENATIDE
     Indication: Type 2 diabetes mellitus
     Route: 058
     Dates: start: 2018

REACTIONS (4)
  - Blood glucose increased [Recovering/Resolving]
  - Product dose omission issue [Not Recovered/Not Resolved]
  - Liquid product physical issue [Unknown]
  - Product storage error [Recovering/Resolving]

NARRATIVE: CASE EVENT DATE: 20220710
